FAERS Safety Report 7562054-3 (Version None)
Quarter: 2011Q2

REPORT INFORMATION
  Report Type: 
  Country: None (occurrence: None)
  Receive Date: 20110622
  Receipt Date: 20110209
  Transmission Date: 20111010
  Serious: Yes (Other)
  Sender: FDA-Public Use
  Company Number: PHHO2010FR05915

PATIENT
  Sex: Male

DRUGS (1)
  1. ILARIS [Suspect]
     Indication: FAMILIAL COLD AUTOINFLAMMATORY SYNDROME
     Dosage: UNK
     Dates: start: 20080910

REACTIONS (3)
  - HEPATITIS C [None]
  - CYTOLYTIC HEPATITIS [None]
  - TRANSAMINASES INCREASED [None]
